FAERS Safety Report 8560414-5 (Version None)
Quarter: 2012Q3

REPORT INFORMATION
  Report Type: 
  Country: None (occurrence: None)
  Receive Date: 20120802
  Receipt Date: 20120801
  Transmission Date: 20120928
  Serious: Yes (Other)
  Sender: FDA-Public Use
  Company Number: CN-ROCHE-1095397

PATIENT
  Sex: Male

DRUGS (3)
  1. CYCLOSPORINE [Concomitant]
     Indication: RENAL TRANSPLANT
  2. CELLCEPT [Suspect]
     Indication: RENAL TRANSPLANT
     Route: 048
     Dates: start: 20050808
  3. STEROID (UNK INGREDIENTS) [Concomitant]
     Indication: RENAL TRANSPLANT

REACTIONS (2)
  - RENAL GRAFT LOSS [None]
  - DIALYSIS [None]
